FAERS Safety Report 16684728 (Version 1)
Quarter: 2019Q3

REPORT INFORMATION
  Report Type: Spontaneous
  Country: TW (occurrence: TW)
  Receive Date: 20190808
  Receipt Date: 20190808
  Transmission Date: 20191004
  Serious: Yes (Other)
  Sender: FDA-Public Use
  Company Number: PHHY2019TW179518

PATIENT
  Age: 18 Year
  Sex: Female

DRUGS (10)
  1. ERGOTAMINE TARTRATE. [Suspect]
     Active Substance: ERGOTAMINE TARTRATE
     Indication: SINUSITIS
     Dosage: UNK UNK, QD
     Route: 065
  2. ERGOTAMINE TARTRATE. [Suspect]
     Active Substance: ERGOTAMINE TARTRATE
     Indication: MIGRAINE
  3. AMOXICILLIN. [Suspect]
     Active Substance: AMOXICILLIN
     Indication: MIGRAINE
  4. CHLORPHENAMINE [Suspect]
     Active Substance: CHLORPHENIRAMINE MALEATE
     Indication: MIGRAINE
  5. PHENOBARBITAL. [Suspect]
     Active Substance: PHENOBARBITAL
     Indication: SINUSITIS
     Dosage: UNK UNK, QD
     Route: 065
  6. CINNARIZINE [Suspect]
     Active Substance: CINNARIZINE
     Indication: SINUSITIS
     Dosage: UNK UNK, QD
     Route: 065
  7. AMOXICILLIN. [Suspect]
     Active Substance: AMOXICILLIN
     Indication: SINUSITIS
     Dosage: UNK UNK, QD
     Route: 065
  8. CINNARIZINE [Suspect]
     Active Substance: CINNARIZINE
     Indication: MIGRAINE
  9. PHENOBARBITAL. [Suspect]
     Active Substance: PHENOBARBITAL
     Indication: MIGRAINE
  10. CHLORPHENAMINE [Suspect]
     Active Substance: CHLORPHENIRAMINE MALEATE
     Indication: SINUSITIS
     Dosage: UNK UNK, QD
     Route: 065

REACTIONS (9)
  - Drug-induced liver injury [Unknown]
  - Cholestasis [Unknown]
  - Pleural effusion [Unknown]
  - Hepatic necrosis [Unknown]
  - Splenomegaly [Unknown]
  - Lymphadenopathy [Unknown]
  - Hepatitis [Unknown]
  - Pyrexia [Recovering/Resolving]
  - Product use in unapproved indication [Unknown]
